FAERS Safety Report 11393162 (Version 2)
Quarter: 2015Q4

REPORT INFORMATION
  Report Type: Spontaneous
  Country: FR (occurrence: FR)
  Receive Date: 20150818
  Receipt Date: 20151123
  Transmission Date: 20160304
  Serious: Yes (Life-Threatening, Hospitalization, Other)
  Sender: FDA-Public Use
  Company Number: FR-BAXTER-2015BAX043566

PATIENT
  Age: 41 Year
  Sex: Male

DRUGS (17)
  1. UROMITEXAN 5 G/50 ML, SOLUTION INJECTABLE POUR PERFUSION EN FLACON [Suspect]
     Active Substance: MESNA
     Dosage: PER COURSE
     Route: 042
     Dates: start: 20150720
  2. ONDANSETRON ACCORD [Concomitant]
     Active Substance: ONDANSETRON
     Indication: PREMEDICATION
     Dosage: PER COURSE
     Route: 042
     Dates: start: 20150629, end: 20150702
  3. METHYLENE BLUE. [Concomitant]
     Active Substance: METHYLENE BLUE
     Indication: PROPHYLAXIS
     Route: 065
     Dates: start: 20150720, end: 20150721
  4. POLARAMINE [Concomitant]
     Active Substance: DEXCHLORPHENIRAMINE MALEATE
     Indication: PREMEDICATION
     Dosage: PER COURSE
     Route: 042
     Dates: start: 20150629, end: 20150702
  5. AZANTAC [Concomitant]
     Active Substance: RANITIDINE HYDROCHLORIDE
     Indication: PREMEDICATION
     Dosage: PER COURSE
     Route: 042
     Dates: start: 20150629, end: 20150702
  6. EMEND [Concomitant]
     Active Substance: APREPITANT
     Indication: PREMEDICATION
     Dosage: PER COURSE
     Route: 048
     Dates: start: 20150629, end: 20150701
  7. IFOSFAMIDE EG [Suspect]
     Active Substance: IFOSFAMIDE
     Indication: TESTICULAR GERM CELL TUMOUR
     Dosage: PER COURSE
     Route: 042
     Dates: start: 20150630, end: 20150702
  8. IFOSFAMIDE EG [Suspect]
     Active Substance: IFOSFAMIDE
     Dosage: PER COURSE
     Route: 042
     Dates: start: 20150720
  9. UROMITEXAN 5 G/50 ML, SOLUTION INJECTABLE POUR PERFUSION EN FLACON [Suspect]
     Active Substance: MESNA
     Indication: TESTICULAR GERM CELL TUMOUR
     Dosage: PER COURSE
     Route: 042
     Dates: start: 20150630, end: 20150702
  10. CISPLATINE MYLAN [Suspect]
     Active Substance: CISPLATIN
     Indication: TESTICULAR GERM CELL TUMOUR
     Dosage: PER COURSE
     Route: 042
     Dates: start: 20150630, end: 20150702
  11. INNOHEP [Concomitant]
     Active Substance: TINZAPARIN SODIUM
     Indication: PRODUCT USED FOR UNKNOWN INDICATION
     Route: 065
  12. METHYLPREDNISOLONE MYLAN [Suspect]
     Active Substance: METHYLPREDNISOLONE
     Indication: PREMEDICATION
     Route: 042
     Dates: start: 20150629, end: 20150702
  13. CISPLATINE MYLAN [Suspect]
     Active Substance: CISPLATIN
     Dosage: PER COURSE
     Route: 042
     Dates: start: 20150720
  14. PACLITAXEL HOSPIRA [Suspect]
     Active Substance: PACLITAXEL
     Indication: TESTICULAR GERM CELL TUMOUR
     Dosage: PER COURSE
     Route: 042
     Dates: start: 20150629, end: 20150629
  15. PACLITAXEL HOSPIRA [Suspect]
     Active Substance: PACLITAXEL
     Dosage: PER COURSE
     Route: 042
     Dates: start: 20150720
  16. INEXIUM [Concomitant]
     Active Substance: ESOMEPRAZOLE
     Indication: PRODUCT USED FOR UNKNOWN INDICATION
     Route: 065
  17. XANAX [Concomitant]
     Active Substance: ALPRAZOLAM
     Indication: PRODUCT USED FOR UNKNOWN INDICATION
     Route: 065

REACTIONS (9)
  - Bone marrow failure [Recovered/Resolved]
  - Enterobacter bacteraemia [Unknown]
  - Hypotension [Unknown]
  - Encephalopathy [Recovered/Resolved]
  - Fanconi syndrome [Recovered/Resolved]
  - Bacterial translocation [Unknown]
  - Condition aggravated [Unknown]
  - Septic shock [Recovered/Resolved]
  - Pyelocaliectasis [Unknown]

NARRATIVE: CASE EVENT DATE: 20150702
